FAERS Safety Report 5658000-X (Version None)
Quarter: 2008Q1

REPORT INFORMATION
  Report Type: 
  Country: None (occurrence: None)
  Receive Date: 20080306
  Receipt Date: 20080229
  Transmission Date: 20080703
  Serious: Yes (Death)
  Sender: FDA-Public Use
  Company Number: 163-21880-07120718

PATIENT
  Age: 74 Year
  Sex: Male

DRUGS (2)
  1. REVLIMID [Suspect]
     Indication: MULTIPLE MYELOMA
     Dosage: 25 MG, QD 21 DAYS ON / 7 DAYS OFF, ORAL
     Route: 048
     Dates: start: 20070929, end: 20071201
  2. METOPROLOL TARTRATE [Concomitant]

REACTIONS (2)
  - CARDIAC DEATH [None]
  - HAEMOGLOBIN DECREASED [None]
